FAERS Safety Report 8768128 (Version 1)
Quarter: 2012Q4

REPORT INFORMATION
  Report Type: 
  Country: US (occurrence: US)
  Receive Date: 20120905
  Receipt Date: 20120905
  Transmission Date: 20130627
  Serious: Yes (Death, Hospitalization)
  Sender: FDA-Public Use
  Company Number: US-GLAXOSMITHKLINE-A0817821A

PATIENT
  Age: 70 Year
  Sex: Male
  Weight: 98.6 kg

DRUGS (1)
  1. AVANDIA [Suspect]
     Indication: DIABETES MELLITUS
     Dosage: 8MG Per day
     Route: 048
     Dates: start: 2000, end: 20070205

REACTIONS (5)
  - Sudden cardiac death [Fatal]
  - Cardiac valve disease [Fatal]
  - Ischaemic cardiomyopathy [Fatal]
  - Cardiac failure congestive [Unknown]
  - Condition aggravated [Unknown]
